FAERS Safety Report 5777353-5 (Version None)
Quarter: 2008Q2

REPORT INFORMATION
  Report Type: 
  Country: None (occurrence: None)
  Receive Date: 20080618
  Receipt Date: 20080611
  Transmission Date: 20081010
  Serious: Yes (Other)
  Sender: FDA-Public Use
  Company Number: PHHY2008CA10174

PATIENT
  Sex: Female

DRUGS (6)
  1. DIOVAN T30230++HY [Suspect]
     Indication: HYPERTENSION
     Dosage: 180 MG, QD
     Route: 048
     Dates: start: 20070908, end: 20071118
  2. DIOVAN T30230++HY [Suspect]
     Dosage: 160 MG/DAY
     Route: 048
  3. THIAZIDES [Concomitant]
     Indication: HYPERTENSION
     Dosage: 25 MG/DAY
  4. ATENOLOL [Concomitant]
     Indication: HYPERTENSION
     Dosage: 100 MG/DAY
  5. NORVASC [Concomitant]
     Indication: HYPERTENSION
     Dosage: 10 MG/DAY
  6. RAMIPRIL [Concomitant]
     Indication: HYPERTENSION
     Dosage: 20 MG/DAY

REACTIONS (3)
  - DRUG INEFFECTIVE [None]
  - HYPERTENSION [None]
  - MICROALBUMINURIA [None]
